FAERS Safety Report 6160364-8 (Version None)
Quarter: 2009Q2

REPORT INFORMATION
  Report Type: 
  Country: None (occurrence: None)
  Receive Date: 20090420
  Receipt Date: 20090414
  Transmission Date: 20091009
  Serious: Yes (Other)
  Sender: FDA-Public Use
  Company Number: ZA-JNJFOC-20090403310

PATIENT
  Age: 7 Decade
  Sex: Female

DRUGS (2)
  1. DURAGESIC-100 [Suspect]
     Route: 062
  2. DURAGESIC-100 [Suspect]
     Indication: DRUG USE FOR UNKNOWN INDICATION
     Dosage: FOR 5 WEEKS
     Route: 062

REACTIONS (4)
  - APHASIA [None]
  - BALANCE DISORDER [None]
  - CONFUSIONAL STATE [None]
  - HYPERSOMNIA [None]
